FAERS Safety Report 6894520-8 (Version None)
Quarter: 2010Q3

REPORT INFORMATION
  Report Type: 
  Country: None (occurrence: None)
  Receive Date: 20100802
  Receipt Date: 20100722
  Transmission Date: 20110219
  Serious: Yes (Hospitalization)
  Sender: FDA-Public Use
  Company Number: FR-ASTRAZENECA-2010SE34663

PATIENT
  Age: 72 Year
  Sex: Female

DRUGS (2)
  1. MEROPENEM [Suspect]
     Indication: MENINGISM
     Route: 042
     Dates: start: 20100517, end: 20100607
  2. VANCOMYCIN [Suspect]
     Indication: MENINGISM
     Dates: start: 20100517, end: 20100607

REACTIONS (2)
  - EOSINOPHILIA [None]
  - TOXIC SKIN ERUPTION [None]
